FAERS Safety Report 24121231 (Version 1)
Quarter: 2024Q3

REPORT INFORMATION
  Report Type: Spontaneous
  Country: US (occurrence: None)
  Receive Date: 20240722
  Receipt Date: 20240722
  Transmission Date: 20241017
  Serious: Yes (Death)
  Sender: Public
  Company Number: None

PATIENT
  Sex: Male

DRUGS (2)
  1. LENALIDOMIDE [Suspect]
     Active Substance: LENALIDOMIDE
     Indication: Burkitt^s lymphoma
     Dosage: OTHER QUANTITY : 1 CAPSULE (25 MG);?FREQUENCY : AS DIRECTED;?
     Route: 048
     Dates: start: 20240621
  2. OXYCODONE [Concomitant]

REACTIONS (1)
  - Death [None]
